FAERS Safety Report 11647654 (Version 1)
Quarter: 2015Q4

REPORT INFORMATION
  Report Type: Spontaneous
  Country: US (occurrence: US)
  Receive Date: 20151021
  Receipt Date: 20151021
  Transmission Date: 20160304
  Serious: No
  Sender: FDA-Public Use
  Company Number: US-TEVA-592718USA

PATIENT
  Age: 43 Year
  Sex: Female

DRUGS (2)
  1. ESTRADIOL. [Suspect]
     Active Substance: ESTRADIOL
     Indication: HORMONE REPLACEMENT THERAPY
     Route: 065
     Dates: start: 20150907, end: 20150908
  2. ESTRADIOL. [Suspect]
     Active Substance: ESTRADIOL
     Indication: HYSTERECTOMY
     Route: 065
     Dates: start: 201508, end: 201509

REACTIONS (7)
  - Abdominal discomfort [Unknown]
  - Sinus congestion [Unknown]
  - Abdominal pain [Unknown]
  - Abdominal distension [Unknown]
  - Oropharyngeal pain [Unknown]
  - Fungal infection [Unknown]
  - Ear pruritus [Unknown]

NARRATIVE: CASE EVENT DATE: 20150907
